FAERS Safety Report 6084894-2 (Version None)
Quarter: 2009Q1

REPORT INFORMATION
  Report Type: 
  Country: None (occurrence: None)
  Receive Date: 20090220
  Receipt Date: 20090211
  Transmission Date: 20090719
  Serious: Yes (Other)
  Sender: FDA-Public Use
  Company Number: PHHY2009CA05239

PATIENT
  Sex: Female

DRUGS (1)
  1. ACLASTA [Suspect]
     Indication: OSTEOPOROSIS

REACTIONS (5)
  - DISORIENTATION [None]
  - FALL [None]
  - FATIGUE [None]
  - HEAD INJURY [None]
  - INFLUENZA LIKE ILLNESS [None]
